FAERS Safety Report 7601013-9 (Version None)
Quarter: 2011Q3

REPORT INFORMATION
  Report Type: 
  Country: None (occurrence: None)
  Receive Date: 20110711
  Receipt Date: 20110629
  Transmission Date: 20111222
  Serious: Yes (Hospitalization)
  Sender: FDA-Public Use
  Company Number: BR-GLAXOSMITHKLINE-A0935378A

PATIENT
  Sex: Male
  Weight: 105 kg

DRUGS (2)
  1. KETOPROFEN [Suspect]
     Indication: PRODUCT USED FOR UNKNOWN INDICATION
     Dosage: 1TAB TWICE PER DAY
     Route: 065
     Dates: start: 20110626, end: 20110628
  2. CEFUROXIME [Suspect]
     Indication: PHARYNGITIS
     Dosage: 250MG TWICE PER DAY
     Route: 065
     Dates: start: 20110626, end: 20110628

REACTIONS (6)
  - RESPIRATORY FAILURE [None]
  - PRODUCT QUALITY ISSUE [None]
  - ERYTHEMA [None]
  - OEDEMA [None]
  - BLOOD PRESSURE INCREASED [None]
  - LOCAL SWELLING [None]
